FAERS Safety Report 20431698 (Version 1)
Quarter: 2022Q1

REPORT INFORMATION
  Report Type: Spontaneous
  Country: US (occurrence: US)
  Receive Date: 20220204
  Receipt Date: 20220204
  Transmission Date: 20220423
  Serious: No
  Sender: FDA-Public Use
  Company Number: US-TAKEDA-US-000895

PATIENT
  Age: 56 Year
  Sex: Female

DRUGS (30)
  1. GATTEX [Suspect]
     Active Substance: TEDUGLUTIDE\WATER
     Indication: Short-bowel syndrome
     Dosage: STREN/VOLUM: 0.375 ML|FREQU: ONCE A DAY
     Route: 058
     Dates: start: 20131214
  2. GATTEX [Suspect]
     Active Substance: TEDUGLUTIDE\WATER
     Indication: Short-bowel syndrome
     Dosage: STREN/VOLUM: 0.375 ML|FREQU: ONCE A DAY
     Route: 058
     Dates: start: 20131214
  3. GATTEX [Suspect]
     Active Substance: TEDUGLUTIDE\WATER
     Indication: Short-bowel syndrome
     Dosage: STREN/VOLUM: 0.375 ML|FREQU: ONCE A DAY
     Route: 058
     Dates: start: 20131214
  4. GATTEX [Suspect]
     Active Substance: TEDUGLUTIDE\WATER
     Indication: Short-bowel syndrome
     Dosage: STREN/VOLUM: 0.375 ML|FREQU: ONCE A DAY
     Route: 058
     Dates: start: 20131214
  5. GATTEX [Suspect]
     Active Substance: TEDUGLUTIDE\WATER
     Dosage: UNK
     Route: 065
     Dates: start: 2015
  6. GATTEX [Suspect]
     Active Substance: TEDUGLUTIDE\WATER
     Dosage: UNK
     Route: 065
     Dates: start: 2015
  7. GATTEX [Suspect]
     Active Substance: TEDUGLUTIDE\WATER
     Dosage: UNK
     Route: 065
     Dates: start: 2015
  8. GATTEX [Suspect]
     Active Substance: TEDUGLUTIDE\WATER
     Dosage: UNK
     Route: 065
     Dates: start: 2015
  9. CEPHALEXIN [Concomitant]
     Active Substance: CEPHALEXIN
     Indication: Bacterial infection
     Dosage: STREN/VOLUM: 500 MG|FREQU: THREE TIMES A DAY
  10. CLOBETASOL PROPIONATE [Concomitant]
     Active Substance: CLOBETASOL PROPIONATE
     Indication: Rash
     Dosage: STREN/VOLUM: 0.5%|FREQU: TWICE A DAY
     Route: 061
  11. Cranberry tablets [Concomitant]
     Indication: Vitamin supplementation
     Dosage: STREN/VOLUM: 1 TABLET|FREQU: TWICE A DAY
  12. FLUDROCORTISONE [Concomitant]
     Active Substance: FLUDROCORTISONE
     Indication: Electrolyte imbalance
     Dosage: STREN/VOLUM: 0.1 MG|FREQU: ONCE A DAY
  13. AMMONIUM LACTATE [Concomitant]
     Active Substance: AMMONIUM LACTATE
     Indication: Rash
     Dosage: STREN/VOLUM: 2%|FREQU: TWICE A DAY
     Route: 061
  14. HEPARIN SODIUM [Concomitant]
     Active Substance: HEPARIN SODIUM
     Indication: Prophylaxis
     Dosage: STREN/VOLUM: 5 ML|FREQU: ONCE A DAY
  15. KLOR-CON [Concomitant]
     Active Substance: POTASSIUM CHLORIDE
     Indication: Vitamin supplementation
     Dosage: STREN/VOLUM: 20 MEQ|FREQU: THREE TIMES A DAY
  16. LOPERAMIDE [Concomitant]
     Active Substance: LOPERAMIDE
     Indication: Diarrhoea
     Dosage: STREN/VOLUM: 2 TABLETS|FREQU: FOUR TIMES A DAY
  17. MAGNESIUM [Concomitant]
     Active Substance: MAGNESIUM
     Indication: Vitamin supplementation
     Dosage: STREN/VOLUM: 400 MG|FREQU: ONCE A DAY
  18. VITAMINS [Concomitant]
     Active Substance: VITAMINS
     Indication: Vitamin supplementation
     Dosage: STREN/VOLUM: 1 TABLET|FREQU: ONCE A DAY
  19. NORCO [Concomitant]
     Active Substance: ACETAMINOPHEN\HYDROCODONE BITARTRATE
     Indication: Pain
     Dosage: STREN/VOLUM: 325 MG|FREQU: EVERY 4 HOURS AS NEEDED
  20. NYSTATIN [Concomitant]
     Active Substance: NYSTATIN
     Indication: Stomatitis
     Dosage: STREN/VOLUM: 1 DOSE|FREQU: FOUR TIMES A DAY
  21. ONDANSETRON [Concomitant]
     Active Substance: ONDANSETRON
     Indication: Nausea
     Dosage: STREN/VOLUM: 4 MG|FREQU: EVERY 8 HOURS AS NEEDED
  22. POTASSIUM [Concomitant]
     Active Substance: POTASSIUM
     Indication: Vitamin supplementation
     Dosage: STREN/VOLUM: 20 MEQ|FREQU: TWICE A DAY
  23. PREVACID [Concomitant]
     Active Substance: LANSOPRAZOLE
     Indication: Gastrooesophageal reflux disease
     Dosage: STREN/VOLUM: 30 MG|FREQU: ONCE A DAY
  24. RESTASIS [Concomitant]
     Active Substance: CYCLOSPORINE
     Indication: Dry eye
     Dosage: STREN/VOLUM: 1 DROP BOTH EYES|FREQU: TWICE A DAY
  25. SERTRALINE [Concomitant]
     Active Substance: SERTRALINE HYDROCHLORIDE
     Indication: Depression
     Dosage: STREN/VOLUM: 50 MG|FREQU: ONCE A DAY
  26. SYNTHROID [Concomitant]
     Active Substance: LEVOTHYROXINE SODIUM
     Indication: Hypothyroidism
     Dosage: STREN/VOLUM: 100 MCG|FREQU: ONCE A DAY
  27. VITAMIN B12 [Concomitant]
     Active Substance: CYANOCOBALAMIN
     Indication: Vitamin supplementation
     Dosage: STREN/VOLUM: 1 TABLET|FREQU: ONCE A DAY
  28. VITAMIN D [Concomitant]
     Active Substance: VITAMIN D NOS
     Indication: Vitamin supplementation
     Dosage: STREN/VOLUM: 1 TABLET|FREQU: ONCE A DAY
  29. ZOLPIDEM [Concomitant]
     Active Substance: ZOLPIDEM TARTRATE
     Indication: Insomnia
     Dosage: STREN/VOLUM: 5 MG|FREQU: AT BEDTIME
  30. SALINE [Concomitant]
     Active Substance: SODIUM CHLORIDE
     Indication: Fluid replacement
     Dosage: STREN/VOLUM: 2 ONE LITER BAGS |FREQU: DAILY - EACH BAG INFUSING OVER 45 MINUTES

REACTIONS (3)
  - Gastrointestinal stoma complication [Not Recovered/Not Resolved]
  - Needle issue [Unknown]
  - Product use complaint [Unknown]

NARRATIVE: CASE EVENT DATE: 20131225
